FAERS Safety Report 9565394 (Version 1)
Quarter: 2013Q3

REPORT INFORMATION
  Report Type: Spontaneous
  Country: US (occurrence: US)
  Receive Date: 20130930
  Receipt Date: 20130930
  Transmission Date: 20140515
  Serious: No
  Sender: FDA-Public Use
  Company Number: US-BAYER-2013-117397

PATIENT
  Age: 68 Year
  Sex: Male

DRUGS (4)
  1. STAXYN (FDT/ODT) [Suspect]
     Indication: ERECTILE DYSFUNCTION
     Dosage: 10 MG, AS NEEDED
     Route: 048
     Dates: start: 201306, end: 201308
  2. LISINOPRIL [Concomitant]
     Indication: BLOOD PRESSURE MANAGEMENT
     Dosage: 1 PER DAY TAKEN BEFORE BED,
     Route: 048
     Dates: start: 201306
  3. SYNTHROID [Concomitant]
     Indication: THYROID DISORDER
     Dosage: 1 PER DAY TAKEN IN THE MORNING
     Route: 048
     Dates: start: 2006
  4. ASPIRIN (E.C.) [ACETYLSALICYLIC ACID] [Concomitant]
     Indication: ANTICOAGULANT THERAPY
     Dosage: 1 PER DAY IN THE MORNING
     Route: 048
     Dates: start: 2006

REACTIONS (1)
  - Drug ineffective [Not Recovered/Not Resolved]
